FAERS Safety Report 24018819 (Version 1)
Quarter: 2024Q2

REPORT INFORMATION
  Report Type: Spontaneous
  Country: CN (occurrence: CN)
  Receive Date: 20240627
  Receipt Date: 20240627
  Transmission Date: 20240716
  Serious: Yes (Other)
  Sender: FDA-Public Use
  Company Number: CN-MYLANLABS-2024M1058067

PATIENT
  Age: 71 Year
  Sex: Female
  Weight: 56 kg

DRUGS (3)
  1. CELEBREX [Suspect]
     Active Substance: CELECOXIB
     Indication: Antiinflammatory therapy
     Dosage: 200 MILLIGRAM, BID
     Route: 048
     Dates: start: 20240613, end: 20240615
  2. CELEBREX [Suspect]
     Active Substance: CELECOXIB
     Indication: Analgesic therapy
  3. OMEPRAZOLE [Concomitant]
     Active Substance: DONEPEZIL HYDROCHLORIDE\OMEPRAZOLE\OMEPRAZOLE MAGNESIUM
     Indication: Antacid therapy
     Dosage: 20 MILLIGRAM, BID (ENTERIC-COATED CAPSULES)
     Route: 048
     Dates: start: 20240613, end: 20240615

REACTIONS (2)
  - Abdominal distension [Recovering/Resolving]
  - Diarrhoea [Recovering/Resolving]

NARRATIVE: CASE EVENT DATE: 20240614
